FAERS Safety Report 12254721 (Version 3)
Quarter: 2016Q2

REPORT INFORMATION
  Report Type: Report from Study
  Country: US (occurrence: US)
  Receive Date: 20160411
  Receipt Date: 20160525
  Transmission Date: 20160815
  Serious: Yes (Hospitalization)
  Sender: FDA-Public Use
  Company Number: US-MALLINCKRODT-T201600853

PATIENT
  Age: 62 Year
  Sex: Female

DRUGS (5)
  1. REPOSITORY CORTICOTROPIN INJECTION [Suspect]
     Active Substance: CORTICOTROPIN
     Dosage: 80 UNITS TWICE WKLY (MON/THUR)
     Route: 058
     Dates: start: 20160328
  2. METHOTREXATE [Suspect]
     Active Substance: METHOTREXATE
     Indication: PRODUCT USED FOR UNKNOWN INDICATION
     Dosage: UNKNOWN DOSE/FREQUENCY (SATURDAYS)
     Route: 065
  3. LASIX [Concomitant]
     Active Substance: FUROSEMIDE
     Dosage: UNK
  4. REPOSITORY CORTICOTROPIN INJECTION [Suspect]
     Active Substance: CORTICOTROPIN
     Indication: DERMATOMYOSITIS
     Dosage: UNKNOWN DOSE/FREQUENCY
     Route: 065
     Dates: start: 201603, end: 201603
  5. PREDNISONE. [Concomitant]
     Active Substance: PREDNISONE
     Dosage: WEANING

REACTIONS (7)
  - Staphylococcal infection [Recovering/Resolving]
  - Hypopnoea [Not Recovered/Not Resolved]
  - Drug hypersensitivity [Not Recovered/Not Resolved]
  - Acute respiratory failure [Recovered/Resolved]
  - Somnolence [Unknown]
  - Viral infection [Unknown]
  - Pneumonia [Recovering/Resolving]

NARRATIVE: CASE EVENT DATE: 20160304
